FAERS Safety Report 13177218 (Version 1)
Quarter: 2017Q1

REPORT INFORMATION
  Report Type: Report from Study
  Country: US (occurrence: US)
  Receive Date: 20170201
  Receipt Date: 20170201
  Transmission Date: 20170428
  Serious: No
  Sender: FDA-Public Use
  Company Number: US-EXELIXIS-CABO-16007453

PATIENT
  Sex: Female

DRUGS (7)
  1. LEXAPRO [Concomitant]
     Active Substance: ESCITALOPRAM OXALATE
  2. PRILOSEC [Concomitant]
     Active Substance: OMEPRAZOLE MAGNESIUM
  3. CABOMETYX [Suspect]
     Active Substance: CABOZANTINIB S-MALATE
     Indication: RENAL CANCER
     Dosage: 40 MG, QD
     Route: 048
     Dates: start: 20160825
  4. TOPROL XL [Concomitant]
     Active Substance: METOPROLOL SUCCINATE
  5. OXYCODONE [Concomitant]
     Active Substance: OXYCODONE
  6. DILAUDID [Concomitant]
     Active Substance: HYDROMORPHONE HYDROCHLORIDE
  7. VOTRIENT [Concomitant]
     Active Substance: PAZOPANIB HYDROCHLORIDE

REACTIONS (1)
  - Urinary tract infection [Unknown]
